FAERS Safety Report 12368028 (Version 1)
Quarter: 2016Q2

REPORT INFORMATION
  Report Type: Spontaneous
  Country: US (occurrence: US)
  Receive Date: 20160513
  Receipt Date: 20160513
  Transmission Date: 20160815
  Serious: No
  Sender: FDA-Public Use
  Company Number: US-JNJFOC-20160500127

PATIENT
  Sex: Female

DRUGS (6)
  1. BENADRYL ULTRATABS [Concomitant]
     Indication: MULTIPLE ALLERGIES
     Dosage: 1 WHEN NEEDED, YEARS
     Route: 065
  2. ZYRTEC [Suspect]
     Active Substance: CETIRIZINE HYDROCHLORIDE
     Indication: MULTIPLE ALLERGIES
     Dosage: ONE 10 MG, FOR 7 DAYS, YEARS AGO
     Route: 048
  3. CHILDRENS ZYRTEC [Concomitant]
     Active Substance: CETIRIZINE HYDROCHLORIDE
     Indication: MULTIPLE ALLERGIES
     Dosage: 2 ML, 1 TIME, YEARS
     Route: 065
  4. DIPHENHYDRAMINE HYDROCHLORIDE. [Concomitant]
     Active Substance: DIPHENHYDRAMINE HYDROCHLORIDE
     Indication: MULTIPLE ALLERGIES
     Dosage: 1 WHEN NEEDED, YEARS
     Route: 065
  5. ZYRTEC [Suspect]
     Active Substance: CETIRIZINE HYDROCHLORIDE
     Route: 048
  6. ALL OTHER THERAPEUTIC PRODUCTS [Concomitant]
     Active Substance: UNSPECIFIED INGREDIENT
     Indication: HYPERTENSION
     Dosage: 1 / 2 TIMES PER DAY, 5 TO 6 YEARS
     Route: 065

REACTIONS (1)
  - Nasal dryness [Recovered/Resolved]
